FAERS Safety Report 15766579 (Version 7)
Quarter: 2020Q1

REPORT INFORMATION
  Report Type: Report from Study
  Country: US (occurrence: US)
  Receive Date: 20181227
  Receipt Date: 20200328
  Transmission Date: 20200409
  Serious: Yes (Hospitalization, Other)
  Sender: FDA-Public Use
  Company Number: PHEH2018US054341

PATIENT
  Sex: Female

DRUGS (1)
  1. PROMACTA [Suspect]
     Active Substance: ELTROMBOPAG OLAMINE
     Indication: PRODUCT USED FOR UNKNOWN INDICATION
     Dosage: 1 DF, QD
     Route: 048

REACTIONS (12)
  - Abdominal discomfort [Unknown]
  - Mobility decreased [Unknown]
  - Confusional state [Unknown]
  - Pneumonia [Unknown]
  - Asthenia [Unknown]
  - Decreased immune responsiveness [Unknown]
  - Hypoacusis [Unknown]
  - Malaise [Unknown]
  - Product use in unapproved indication [Unknown]
  - Oropharyngeal discomfort [Unknown]
  - Platelet count decreased [Unknown]
  - Memory impairment [Unknown]
